FAERS Safety Report 18709933 (Version 2)
Quarter: 2021Q1

REPORT INFORMATION
  Report Type: Spontaneous
  Country: US (occurrence: US)
  Receive Date: 20210106
  Receipt Date: 20210316
  Transmission Date: 20210419
  Serious: No
  Sender: FDA-Public Use
  Company Number: US-INTERSECT ENT, INC.-2104037

PATIENT
  Age: 73 Year
  Sex: Male

DRUGS (1)
  1. SINUVA [Suspect]
     Active Substance: MOMETASONE FUROATE
     Indication: NASAL POLYPS
     Route: 006
     Dates: start: 20200828, end: 20201013

REACTIONS (2)
  - Device dislocation [Unknown]
  - Rhinalgia [Unknown]

NARRATIVE: CASE EVENT DATE: 20201012
